FAERS Safety Report 7968700-4 (Version None)
Quarter: 2011Q4

REPORT INFORMATION
  Report Type: 
  Country: None (occurrence: None)
  Receive Date: 20111209
  Receipt Date: 20111206
  Transmission Date: 20120403
  Serious: Yes (Other)
  Sender: FDA-Public Use
  Company Number: AT-PFIZER INC-2011297231

PATIENT
  Sex: Female

DRUGS (1)
  1. DOXYCYCLINE HYCLATE [Suspect]
     Indication: OFF LABEL USE
     Dosage: 100 MG/5ML  1X/DAY CYCLIC
     Route: 042

REACTIONS (3)
  - HYPERMETROPIA [None]
  - FATIGUE [None]
  - MYALGIA [None]
